FAERS Safety Report 10791594 (Version 1)
Quarter: 2015Q1

REPORT INFORMATION
  Report Type: Spontaneous
  Country: US (occurrence: US)
  Receive Date: 20150213
  Receipt Date: 20150213
  Transmission Date: 20150721
  Serious: Yes (Hospitalization, Other)
  Sender: FDA-Public Use
  Company Number: US-GLAXOSMITHKLINE-US2015015531

PATIENT
  Sex: Female

DRUGS (14)
  1. LOSARTAN [Concomitant]
     Active Substance: LOSARTAN
  2. MORPHINE [Concomitant]
     Active Substance: MORPHINE
  3. PREDNISONE. [Concomitant]
     Active Substance: PREDNISONE
  4. TOPIRAMATE. [Concomitant]
     Active Substance: TOPIRAMATE
  5. BACLOFEN. [Concomitant]
     Active Substance: BACLOFEN
  6. PROMACTA [Suspect]
     Active Substance: ELTROMBOPAG OLAMINE
     Indication: IMMUNE THROMBOCYTOPENIC PURPURA
     Dosage: 25 MG, BID
     Route: 048
  7. METAXALONE. [Concomitant]
     Active Substance: METAXALONE
  8. METHADONE [Concomitant]
     Active Substance: METHADONE HYDROCHLORIDE
  9. ADDERALL [Concomitant]
     Active Substance: AMPHETAMINE ASPARTATE\AMPHETAMINE SULFATE\DEXTROAMPHETAMINE SACCHARATE\DEXTROAMPHETAMINE SULFATE
  10. BUPROPION [Concomitant]
     Active Substance: BUPROPION
  11. FLAGYL [Concomitant]
     Active Substance: METRONIDAZOLE\METRONIDAZOLE HYDROCHLORIDE
  12. PERCOCET [Concomitant]
     Active Substance: ACETAMINOPHEN\OXYCODONE HYDROCHLORIDE
  13. CITALOPRAM [Concomitant]
     Active Substance: CITALOPRAM HYDROBROMIDE
  14. OMEPRAZOLE. [Concomitant]
     Active Substance: OMEPRAZOLE

REACTIONS (6)
  - Sinus disorder [Recovered/Resolved]
  - White blood cell count increased [Unknown]
  - Clostridium difficile infection [Not Recovered/Not Resolved]
  - Pharyngitis streptococcal [Recovered/Resolved]
  - Platelet count increased [Unknown]
  - Colitis [Unknown]

NARRATIVE: CASE EVENT DATE: 2014
